FAERS Safety Report 14125455 (Version 1)
Quarter: 2017Q4

REPORT INFORMATION
  Report Type: Report from Study
  Country: US (occurrence: US)
  Receive Date: 20171025
  Receipt Date: 20171025
  Transmission Date: 20180321
  Serious: Yes (Other)
  Sender: FDA-Public Use
  Company Number: US-JNJFOC-20171018319

PATIENT

DRUGS (1)
  1. DOXORUBICIN HYDROCHLORIDE. [Suspect]
     Active Substance: DOXORUBICIN HYDROCHLORIDE
     Indication: THYROID CANCER
     Route: 065

REACTIONS (5)
  - Dermatitis [Unknown]
  - Mucosal inflammation [Unknown]
  - Dysphagia [Unknown]
  - Product use in unapproved indication [Unknown]
  - Off label use [Unknown]
